FAERS Safety Report 6490004-X (Version None)
Quarter: 2009Q4

REPORT INFORMATION
  Report Type: 
  Country: None (occurrence: None)
  Receive Date: 20091210
  Receipt Date: 20091210
  Transmission Date: 20100525
  Serious: Yes (Other)
  Sender: FDA-Public Use
  Company Number: None

PATIENT
  Sex: Female
  Weight: 89.3586 kg

DRUGS (1)
  1. PENICILLIN VK [Suspect]
     Indication: GINGIVAL INFECTION
     Dosage: 500 MG 5 X A DAY
     Dates: start: 20091107, end: 20091112

REACTIONS (4)
  - DRUG DISPENSING ERROR [None]
  - DRUG INEFFECTIVE [None]
  - EAR PAIN [None]
  - OROPHARYNGEAL PAIN [None]
